FAERS Safety Report 4631367-7 (Version None)
Quarter: 2005Q2

REPORT INFORMATION
  Report Type: 
  Country: None (occurrence: None)
  Receive Date: 20050407
  Receipt Date: 20050328
  Transmission Date: 20051028
  Serious: Yes (Hospitalization)
  Sender: FDA-Public Use
  Company Number: S05-USA-01685-01

PATIENT
  Age: 16 Year
  Sex: Female
  Weight: 65.318 kg

DRUGS (4)
  1. CELEXA [Suspect]
     Indication: ANXIETY
     Dosage: 10 MG QHS PO
     Route: 048
     Dates: start: 20050209, end: 20050215
  2. CELEXA [Suspect]
     Indication: ANXIETY
     Dosage: 20 MG QHS PO
     Route: 048
     Dates: start: 20050216, end: 20050324
  3. CELEXA [Suspect]
     Indication: ANXIETY
     Dates: start: 20050324, end: 20050324
  4. BUPAP [Concomitant]

REACTIONS (6)
  - DEPRESSION [None]
  - HYPERTENSION [None]
  - INTENTIONAL MISUSE [None]
  - INTENTIONAL SELF-INJURY [None]
  - SOMNOLENCE [None]
  - SUICIDE ATTEMPT [None]
